FAERS Safety Report 9406407 (Version 2)
Quarter: 2013Q3

REPORT INFORMATION
  Report Type: Spontaneous
  Country: TW (occurrence: TW)
  Receive Date: 20130718
  Receipt Date: 20130806
  Transmission Date: 20140515
  Serious: No
  Sender: FDA-Public Use
  Company Number: TW-AMGEN-TWNSP2013049931

PATIENT
  Age: 10 Year
  Sex: Male

DRUGS (1)
  1. ENBREL [Suspect]
     Indication: PSORIATIC ARTHROPATHY
     Dosage: 12.5 MG, WEEKLY
     Route: 058
     Dates: start: 20110118, end: 20130712

REACTIONS (3)
  - Pyrexia [Recovered/Resolved]
  - Rash [Recovered/Resolved]
  - Viral infection [Recovered/Resolved]
